FAERS Safety Report 7043694-7 (Version None)
Quarter: 2010Q3

REPORT INFORMATION
  Report Type: 
  Country: None (occurrence: None)
  Receive Date: 20100929
  Receipt Date: 20100706
  Transmission Date: 20110219
  Serious: No
  Sender: FDA-Public Use
  Company Number: US-WYE-H15999610

PATIENT
  Age: 50 Year
  Sex: Female
  Weight: 113.05 kg

DRUGS (6)
  1. PRISTIQ [Suspect]
     Indication: DEPRESSION
     Dosage: SEE IMAGE
     Route: 048
     Dates: start: 20090101, end: 20090101
  2. PRISTIQ [Suspect]
     Indication: DEPRESSION
     Dosage: SEE IMAGE
     Route: 048
     Dates: start: 20090101, end: 20090101
  3. LORAZEPAM [Concomitant]
  4. PREMPRO (CONJUGATED ESTROGENS 0.3MG/MEDROXYPROGESTERONE ACETATE 1.5MG) [Concomitant]
  5. LOMOTIL [Concomitant]
  6. NEXIUM [Concomitant]

REACTIONS (2)
  - FEELING ABNORMAL [None]
  - TACHYPHRENIA [None]
